FAERS Safety Report 18435189 (Version 1)
Quarter: 2020Q4

REPORT INFORMATION
  Report Type: Spontaneous
  Country: US (occurrence: US)
  Receive Date: 20201028
  Receipt Date: 20201028
  Transmission Date: 20210114
  Serious: No
  Sender: FDA-Public Use
  Company Number: US-BAUSCH-BL-2020-030275

PATIENT
  Age: 73 Year
  Sex: Female
  Weight: 63.56 kg

DRUGS (3)
  1. LUMIFY [Suspect]
     Active Substance: BRIMONIDINE TARTRATE
     Indication: DRY EYE
     Dosage: STARTED: ABOUT ONE YEAR AGO (ONE DROP IN EACH EYE), ?REGIMEN FOR PAST BOTTLE WHICH WORKED
     Route: 047
     Dates: start: 2019
  2. LUMIFY [Suspect]
     Active Substance: BRIMONIDINE TARTRATE
     Indication: OCULAR HYPERAEMIA
     Dosage: REGIMEN FOR THE LAST BOTTLE WHICH DID NOT WORK?ONE DROP IN EACH EYE
     Route: 047
  3. LUMIFY [Suspect]
     Active Substance: BRIMONIDINE TARTRATE
     Dosage: REGIMEN FOR THE NEWLY STARTED BOTTLE?ONE DROP IN EACH EYE
     Route: 047

REACTIONS (5)
  - Condition aggravated [Unknown]
  - Eye irritation [Recovered/Resolved]
  - Product quality issue [Unknown]
  - Ocular hyperaemia [Unknown]
  - Therapeutic product effect incomplete [Unknown]
